FAERS Safety Report 17746369 (Version 1)
Quarter: 2020Q2

REPORT INFORMATION
  Report Type: Spontaneous
  Country: US (occurrence: US)
  Receive Date: 20200505
  Receipt Date: 20200505
  Transmission Date: 20200714
  Serious: No
  Sender: FDA-Public Use
  Company Number: US-ROCHE-2380186

PATIENT
  Sex: Female

DRUGS (2)
  1. AUGMENTIN [Concomitant]
     Active Substance: AMOXICILLIN\CLAVULANATE POTASSIUM
  2. ESBRIET [Suspect]
     Active Substance: PIRFENIDONE
     Indication: IDIOPATHIC PULMONARY FIBROSIS
     Dosage: ONGOING YES
     Route: 048
     Dates: start: 20170921

REACTIONS (7)
  - Nausea [Unknown]
  - Diarrhoea [Unknown]
  - Dyspepsia [Unknown]
  - Vomiting [Unknown]
  - Fatigue [Unknown]
  - Abdominal pain upper [Unknown]
  - Arthralgia [Unknown]
